FAERS Safety Report 11706429 (Version 1)
Quarter: 2015Q4

REPORT INFORMATION
  Report Type: Spontaneous
  Country: US (occurrence: US)
  Receive Date: 20151104
  Receipt Date: 20151104
  Transmission Date: 20160304
  Serious: No
  Sender: FDA-Public Use
  Company Number: US-ELI_LILLY_AND_COMPANY-US201102001323

PATIENT
  Age: 45 Year
  Sex: Female

DRUGS (2)
  1. FORTEO [Suspect]
     Active Substance: TERIPARATIDE
     Indication: OSTEOPENIA
     Dosage: 20 UG, DAILY (1/D)
     Dates: start: 201005
  2. FORTEO [Suspect]
     Active Substance: TERIPARATIDE
     Dosage: 20 UG, DAILY (1/D)
     Dates: start: 20101228

REACTIONS (6)
  - Off label use [Unknown]
  - Lactation disorder [Recovered/Resolved]
  - Pneumonia [Unknown]
  - Hormone level abnormal [Unknown]
  - Breast discomfort [Recovered/Resolved]
  - Adrenal disorder [Recovered/Resolved]

NARRATIVE: CASE EVENT DATE: 201005
